FAERS Safety Report 9303646 (Version 2)
Quarter: 2013Q2

REPORT INFORMATION
  Report Type: Spontaneous
  Country: US (occurrence: US)
  Receive Date: 20130522
  Receipt Date: 20130529
  Transmission Date: 20140414
  Serious: Yes (Hospitalization)
  Sender: FDA-Public Use
  Company Number: US-GILEAD-2013-0075528

PATIENT
  Age: 92 Year
  Sex: Female

DRUGS (2)
  1. LETAIRIS [Suspect]
     Indication: CARDIAC VALVE DISEASE
     Dosage: 5 MG, QD
     Dates: start: 20121108
  2. LETAIRIS [Suspect]
     Indication: PULMONARY HYPERTENSION

REACTIONS (1)
  - Dyspnoea [Unknown]
